FAERS Safety Report 7874152-5 (Version None)
Quarter: 2011Q4

REPORT INFORMATION
  Report Type: 
  Country: None (occurrence: None)
  Receive Date: 20111030
  Receipt Date: 20110516
  Transmission Date: 20120403
  Serious: No
  Sender: FDA-Public Use
  Company Number: US-AMGEN-USASP2011016579

PATIENT
  Age: 59 Year
  Sex: Female

DRUGS (3)
  1. ENBREL [Suspect]
     Dates: start: 20110315
  2. HUMIRA [Concomitant]
  3. ENBREL [Suspect]
     Indication: RHEUMATOID ARTHRITIS
     Dosage: 50 MG, QWK
     Dates: start: 20110302, end: 20110412

REACTIONS (12)
  - COUGH [None]
  - INJECTION SITE PRURITUS [None]
  - INJECTION SITE SWELLING [None]
  - RHINORRHOEA [None]
  - JOINT SWELLING [None]
  - SKIN LESION [None]
  - INJECTION SITE ERYTHEMA [None]
  - SNEEZING [None]
  - CHILLS [None]
  - INJECTION SITE REACTION [None]
  - OROPHARYNGEAL PAIN [None]
  - PRURITUS [None]
